FAERS Safety Report 25051712 (Version 2)
Quarter: 2025Q2

REPORT INFORMATION
  Report Type: Spontaneous
  Country: US (occurrence: US)
  Receive Date: 20250307
  Receipt Date: 20250404
  Transmission Date: 20250717
  Serious: Yes (Other)
  Sender: BLUEPRINT MEDICINES
  Company Number: US-Blueprint Medicines Corporation-2025-AER-00414

PATIENT
  Age: 73 Year
  Sex: Female

DRUGS (1)
  1. AYVAKIT [Suspect]
     Active Substance: AVAPRITINIB
     Indication: Haematopoietic neoplasm
     Route: 065
     Dates: start: 20241120

REACTIONS (12)
  - Internal haemorrhage [Unknown]
  - Gastrointestinal ulcer [Unknown]
  - Multi-organ disorder [Unknown]
  - Infection [Unknown]
  - Skin disorder [Unknown]
  - Urticaria [Unknown]
  - Pruritus [Unknown]
  - Asthenia [Unknown]
  - Back pain [Unknown]
  - Pain in extremity [Unknown]
  - Laboratory test abnormal [Unknown]
  - Inflammation [Unknown]
